FAERS Safety Report 6811481-8 (Version None)
Quarter: 2010Q2

REPORT INFORMATION
  Report Type: 
  Country: None (occurrence: None)
  Receive Date: 20100629
  Receipt Date: 20100629
  Transmission Date: 20101027
  Serious: No
  Sender: FDA-Public Use
  Company Number: None

PATIENT
  Age: 62 Year
  Sex: Male
  Weight: 95.2554 kg

DRUGS (1)
  1. TESTOPEL [Suspect]

REACTIONS (5)
  - DEVICE EXPULSION [None]
  - DISCOMFORT [None]
  - IMPLANT SITE DISCOLOURATION [None]
  - IMPLANT SITE INFECTION [None]
  - PAIN [None]
